FAERS Safety Report 23267782 (Version 1)
Quarter: 2023Q4

REPORT INFORMATION
  Report Type: Spontaneous
  Country: US (occurrence: None)
  Receive Date: 20231205
  Receipt Date: 20231205
  Transmission Date: 20240110
  Serious: Yes (Disabling)
  Sender: FDA-Public Use
  Company Number: None

PATIENT
  Age: 19 Year
  Sex: Female
  Weight: 54 kg

DRUGS (5)
  1. FLUOXETINE [Suspect]
     Active Substance: FLUOXETINE HYDROCHLORIDE
     Indication: Depression
     Dosage: FREQUENCY : AT BEDTIME;?
     Route: 048
  2. Fexofenadne [Concomitant]
  3. FLUTICASONE [Concomitant]
     Active Substance: FLUTICASONE
  4. DIETARY SUPPLEMENT [Concomitant]
     Active Substance: DIETARY SUPPLEMENT
  5. Walgreens Women^s Multivitamin Gummies [Concomitant]

REACTIONS (7)
  - Sexual dysfunction [None]
  - Libido decreased [None]
  - Emotional disorder [None]
  - Anorgasmia [None]
  - Hypoaesthesia [None]
  - Genital hypoaesthesia [None]
  - Genital pain [None]

NARRATIVE: CASE EVENT DATE: 20190901
